FAERS Safety Report 7805780 (Version 25)
Quarter: 2015Q2

REPORT INFORMATION
  Report Type: Report from Study
  Country: CA (occurrence: CA)
  Receive Date: 20110209
  Receipt Date: 20150409
  Transmission Date: 20150821
  Serious: Yes (Other)
  Sender: FDA-Public Use
  Company Number: PHHY2009CA50080

PATIENT
  Age: 58 Year
  Sex: Male
  Weight: 40.36 kg

DRUGS (1)
  1. SANDOSTATIN LAR DEPOT [Suspect]
     Active Substance: OCTREOTIDE ACETATE
     Indication: CARCINOID TUMOUR
     Dosage: 30 MG, EVERY 4 WEEKS
     Route: 030
     Dates: start: 20091114

REACTIONS (21)
  - Peripheral swelling [Unknown]
  - Blood glucose increased [Unknown]
  - Hypoaesthesia [Unknown]
  - Pyrexia [Unknown]
  - Movement disorder [Unknown]
  - Limb injury [Unknown]
  - Decreased appetite [Unknown]
  - Loss of consciousness [Unknown]
  - Blood pressure increased [Unknown]
  - Back pain [Unknown]
  - Abdominal pain lower [Unknown]
  - Fall [Unknown]
  - Nerve compression [Unknown]
  - Muscle spasms [Not Recovered/Not Resolved]
  - Headache [Recovered/Resolved]
  - Paraesthesia [Unknown]
  - Asthenia [Unknown]
  - Pain in extremity [Unknown]
  - Malaise [Unknown]
  - Chest X-ray abnormal [Unknown]
  - Fatigue [Unknown]

NARRATIVE: CASE EVENT DATE: 20110126
